FAERS Safety Report 7811584-5 (Version None)
Quarter: 2011Q4

REPORT INFORMATION
  Report Type: 
  Country: None (occurrence: None)
  Receive Date: 20111013
  Receipt Date: 20111010
  Transmission Date: 20120403
  Serious: Yes (Other)
  Sender: FDA-Public Use
  Company Number: US-AMGEN-USASP2011039825

PATIENT
  Age: 77 Year
  Sex: Female

DRUGS (4)
  1. MICARDIS [Concomitant]
     Dosage: UNK
  2. ENBREL [Suspect]
     Dosage: 50 MG, QWK
     Dates: start: 20110615
  3. LOSARTAN POTASSIUM [Concomitant]
     Dosage: UNK
  4. ENBREL [Suspect]
     Indication: RHEUMATOID ARTHRITIS
     Dosage: 50 MG, QWK
     Route: 058
     Dates: start: 20110317, end: 20110914

REACTIONS (5)
  - HYPERTENSION [None]
  - ORAL DISCOMFORT [None]
  - MUSCULAR WEAKNESS [None]
  - GLOSSODYNIA [None]
  - PAIN IN EXTREMITY [None]
